FAERS Safety Report 23286155 (Version 1)
Quarter: 2023Q4

REPORT INFORMATION
  Report Type: Spontaneous
  Country: CN (occurrence: CN)
  Receive Date: 20231212
  Receipt Date: 20231212
  Transmission Date: 20240109
  Serious: Yes (Hospitalization)
  Sender: FDA-Public Use
  Company Number: CN-ABBVIE-5525467

PATIENT
  Age: 11 Year
  Sex: Female
  Weight: 38 kg

DRUGS (1)
  1. VENETOCLAX [Suspect]
     Active Substance: VENETOCLAX
     Indication: Acute myeloid leukaemia
     Dosage: 250 MILLIGRAM
     Route: 048
     Dates: start: 20231030

REACTIONS (3)
  - Myelosuppression [Recovering/Resolving]
  - Acute myeloid leukaemia [Recovering/Resolving]
  - C-reactive protein abnormal [Recovering/Resolving]

NARRATIVE: CASE EVENT DATE: 20231117
